FAERS Safety Report 15345179 (Version 1)
Quarter: 2018Q3

REPORT INFORMATION
  Report Type: Spontaneous
  Country: GB (occurrence: GB)
  Receive Date: 20180903
  Receipt Date: 20180903
  Transmission Date: 20181010
  Serious: Yes (Hospitalization, Other)
  Sender: FDA-Public Use
  Company Number: PHHY2018GB022247

PATIENT
  Age: 19 Year
  Sex: Female
  Weight: 60 kg

DRUGS (9)
  1. EXJADE [Suspect]
     Active Substance: DEFERASIROX
     Dosage: ONCE OR TWICE WEEK
     Route: 065
  2. EXJADE [Suspect]
     Active Substance: DEFERASIROX
     Indication: IRON OVERLOAD
     Dosage: 540 OT, QD
     Route: 048
  3. AMOXICILLIN. [Concomitant]
     Active Substance: AMOXICILLIN
     Indication: PRODUCT USED FOR UNKNOWN INDICATION
     Dosage: 500 MG, QD
     Route: 065
  4. FOLIC ACID. [Concomitant]
     Active Substance: FOLIC ACID
     Indication: PRODUCT USED FOR UNKNOWN INDICATION
     Dosage: 5 MG, QD
     Route: 065
  5. EXJADE [Suspect]
     Active Substance: DEFERASIROX
     Dosage: UNK
     Route: 065
     Dates: end: 2017
  6. PENICILLIN V [Concomitant]
     Active Substance: PENICILLIN V
     Indication: PRODUCT USED FOR UNKNOWN INDICATION
     Route: 065
  7. HYDROXYCARBAMIDE [Concomitant]
     Active Substance: HYDROXYUREA
     Indication: PRODUCT USED FOR UNKNOWN INDICATION
     Route: 065
  8. EXJADE [Suspect]
     Active Substance: DEFERASIROX
     Dosage: 360 MG, QD
     Route: 065
  9. EXJADE [Suspect]
     Active Substance: DEFERASIROX
     Indication: PRODUCT USED FOR UNKNOWN INDICATION
     Dosage: 800 MG, BID
     Route: 065
     Dates: start: 2014

REACTIONS (14)
  - Abdominal pain upper [Unknown]
  - Pancreatitis [Recovering/Resolving]
  - Dehydration [Unknown]
  - Pain [Unknown]
  - Back pain [Unknown]
  - Oedematous pancreatitis [Recovering/Resolving]
  - Transaminases increased [Recovered/Resolved]
  - Sickle cell anaemia with crisis [Unknown]
  - Jaundice [Unknown]
  - Flank pain [Unknown]
  - Vomiting [Unknown]
  - Blood bilirubin increased [Unknown]
  - Sickle cell disease [Unknown]
  - Nausea [Unknown]

NARRATIVE: CASE EVENT DATE: 20180103
